FAERS Safety Report 9445733 (Version 1)
Quarter: 2013Q3

REPORT INFORMATION
  Report Type: Other
  Country: US (occurrence: US)
  Receive Date: 20130807
  Receipt Date: 20130807
  Transmission Date: 20140515
  Serious: Yes (Other)
  Sender: FDA-Public Use
  Company Number: US-BRISTOL-MYERS SQUIBB COMPANY-19168186

PATIENT
  Sex: 0

DRUGS (1)
  1. EFAVIRENZ [Suspect]
     Indication: HIV INFECTION

REACTIONS (1)
  - Homicidal ideation [Unknown]
